FAERS Safety Report 10184896 (Version 1)
Quarter: 2014Q2

REPORT INFORMATION
  Report Type: Spontaneous
  Country: US (occurrence: None)
  Receive Date: 20140520
  Receipt Date: 20140520
  Transmission Date: 20141212
  Serious: Yes (Other)
  Sender: FDA-Public Use
  Company Number: None

PATIENT
  Age: 56 Year
  Sex: Female
  Weight: 56.7 kg

DRUGS (11)
  1. PROTOPIC [Suspect]
     Indication: DERMATITIS
     Dosage: 0.1%?RUB A SMALL AMOUNT ON AFFECTED AREA?2X/DAILY?ON THE SKIN
     Route: 061
     Dates: start: 20140115, end: 20140408
  2. PROTOPIC [Suspect]
     Indication: DERMATITIS
     Dosage: 0.1%?RUB A SMALL AMOUNT ON AFFECTED AREA?2X/DAILY?ON THE SKIN
     Route: 061
     Dates: start: 20140115, end: 20140408
  3. RESTASIS [Concomitant]
  4. ADDERALL [Concomitant]
  5. LORAZEPAM [Concomitant]
  6. DOXYCYCLINE [Concomitant]
  7. MULTIPLE VITAMIN [Concomitant]
  8. L-LYSINE [Concomitant]
  9. VANIPLY [Concomitant]
  10. VITAMIN D [Concomitant]
  11. OMEGA 3 FISH OIL [Concomitant]

REACTIONS (12)
  - Arthralgia [None]
  - Back pain [None]
  - Pelvic pain [None]
  - Malaise [None]
  - Insomnia [None]
  - Pain in extremity [None]
  - Muscle tightness [None]
  - Condition aggravated [None]
  - Unevaluable event [None]
  - Nausea [None]
  - Feeling hot [None]
  - Feeling abnormal [None]
